FAERS Safety Report 17267657 (Version 4)
Quarter: 2020Q1

REPORT INFORMATION
  Report Type: Spontaneous
  Country: US (occurrence: US)
  Receive Date: 20200114
  Receipt Date: 20200318
  Transmission Date: 20200409
  Serious: Yes (Hospitalization, Other)
  Sender: FDA-Public Use
  Company Number: US-PFIZER INC-2019252130

PATIENT
  Age: 78 Year
  Sex: Female
  Weight: 64.86 kg

DRUGS (23)
  1. IPILIMUMAB [Concomitant]
     Active Substance: IPILIMUMAB
     Dosage: UNK
     Dates: start: 20190227, end: 20190506
  2. BIOTIN [Concomitant]
     Active Substance: BIOTIN
     Indication: SUPPLEMENTATION THERAPY
     Dosage: 5000 UG, 1X/DAY
     Route: 048
  3. BIOTIN [Concomitant]
     Active Substance: BIOTIN
     Dosage: 5000 UG, 2X/DAY
     Route: 048
  4. CALCIUM CITRATE [Concomitant]
     Active Substance: CALCIUM CITRATE
     Indication: SUPPLEMENTATION THERAPY
     Dosage: 1200 MG, 1X/DAY
     Route: 048
  5. SUPER B COMPLEX [VITAMIN B COMPLEX] [Concomitant]
     Indication: SUPPLEMENTATION THERAPY
     Dosage: 1 DF, 1X/DAY
     Route: 048
  6. AXITINIB [Concomitant]
     Active Substance: AXITINIB
     Indication: CHEMOTHERAPY
  7. ATIVAN [Concomitant]
     Active Substance: LORAZEPAM
     Indication: ANXIETY
     Dosage: UNK (DO NOT EXCEED MORE THAN 1 TABLET IN A 24-HOUR PERIOD)
  8. AXITINIB [Concomitant]
     Active Substance: AXITINIB
     Indication: MALIGNANT MELANOMA
     Dosage: 5 MG, 2X/DAY
     Dates: start: 20190925, end: 20200122
  9. INLYTA [Suspect]
     Active Substance: AXITINIB
     Indication: MALIGNANT MELANOMA
     Dosage: 5 MG, 1X/DAY
     Route: 048
  10. INFLIXIMAB [Concomitant]
     Active Substance: INFLIXIMAB
     Dosage: UNK
     Dates: start: 20190524, end: 20190621
  11. LORAZEPAM. [Concomitant]
     Active Substance: LORAZEPAM
     Indication: MAJOR DEPRESSION
  12. INLYTA [Suspect]
     Active Substance: AXITINIB
     Dosage: 5 MG, 2X/DAY
     Route: 048
  13. NIVOLUMAB [Concomitant]
     Active Substance: NIVOLUMAB
     Dosage: UNK
     Dates: start: 20190227, end: 20190506
  14. CHOLECALCIFEROL [Concomitant]
     Active Substance: CHOLECALCIFEROL
     Indication: SUPPLEMENTATION THERAPY
     Dosage: 2000 IU, 1X/DAY
     Route: 048
  15. HYDROCORTISONE. [Concomitant]
     Active Substance: HYDROCORTISONE
     Indication: ADRENAL INSUFFICIENCY
     Dosage: 15 MG, DAILY (TAKE 2 TABS (10MG) IN THE AM TAKE 1 TAB (5MG) AT 3PM)
     Dates: start: 20191210
  16. AMOXICILLIN. [Concomitant]
     Active Substance: AMOXICILLIN
     Indication: TOOTH DISORDER
     Dosage: 500 MG, 3X/DAY
     Route: 048
     Dates: start: 20200127
  17. LORAZEPAM. [Concomitant]
     Active Substance: LORAZEPAM
     Indication: ANXIETY
     Dosage: 0.5 MG, AS NEEDED (1 TAB(S) ORALLY ONCE A DAY (AT BEDTIME))
     Dates: start: 20191012, end: 20191026
  18. TRAMADOL. [Concomitant]
     Active Substance: TRAMADOL
     Indication: TUMOUR PAIN
     Dosage: 25 MG, AS NEEDED (0.5 TAB(S) ORALLY EVERY 6 HOURS X 30 DAYS, AS NEEDED)
     Route: 048
     Dates: start: 20200121, end: 20200219
  19. ENOXAPARIN [Concomitant]
     Active Substance: ENOXAPARIN
     Dosage: 40 MG, 1X/DAY (40 MG/0.4 ML INJECTABLE SOLUTION)
     Route: 058
     Dates: start: 20200110
  20. MINOXIDIL. [Concomitant]
     Active Substance: MINOXIDIL
     Indication: HAIR DISORDER
     Dosage: UNK, 1X/DAY
     Route: 061
     Dates: start: 20190930
  21. INLYTA [Suspect]
     Active Substance: AXITINIB
     Dosage: UNK
     Route: 048
     Dates: start: 20190925
  22. PROBIOTIC [BIFIDOBACTERIUM INFANTIS;LACTOBACILLUS ACIDOPHILUS] [Concomitant]
     Indication: SUPPLEMENTATION THERAPY
     Dosage: 1 DF, 1X/DAY
  23. AMLODIPINE [Concomitant]
     Active Substance: AMLODIPINE BESYLATE
     Indication: HYPERTENSION
     Dosage: 5 MG, 1X/DAY
     Route: 048
     Dates: start: 20200108

REACTIONS (18)
  - Deep vein thrombosis [Unknown]
  - Aphonia [Recovered/Resolved]
  - Pain in extremity [Not Recovered/Not Resolved]
  - Haematoma [Unknown]
  - Neck pain [Not Recovered/Not Resolved]
  - Blood albumin decreased [Unknown]
  - Blood urea increased [Unknown]
  - Product use in unapproved indication [Unknown]
  - Mass [Not Recovered/Not Resolved]
  - Thrombosis [Unknown]
  - Aspartate aminotransferase increased [Unknown]
  - Neoplasm progression [Unknown]
  - Fatigue [Recovered/Resolved]
  - Hyperkalaemia [Unknown]
  - Weight decreased [Unknown]
  - Blood creatine phosphokinase decreased [Unknown]
  - Blood phosphorus increased [Unknown]
  - Off label use [Unknown]

NARRATIVE: CASE EVENT DATE: 201905
